FAERS Safety Report 10952375 (Version 1)
Quarter: 2015Q1

REPORT INFORMATION
  Report Type: Spontaneous
  Country: US (occurrence: None)
  Receive Date: 20150324
  Receipt Date: 20150324
  Transmission Date: 20150721
  Serious: Yes (Other)
  Sender: FDA-Public Use
  Company Number: None

PATIENT
  Age: 24 Year
  Sex: Male
  Weight: 117.94 kg

DRUGS (2)
  1. CREST PRO-HEALTH (CETYLPYRIDINIUM) [Suspect]
     Active Substance: CETYLPYRIDINIUM CHLORIDE
     Indication: PROPHYLAXIS
     Dosage: MOUTH WASH
     Dates: start: 20150321, end: 20150322
  2. CREST PRO-HEALTH (CETYLPYRIDINIUM) [Suspect]
     Active Substance: CETYLPYRIDINIUM CHLORIDE
     Indication: GINGIVITIS
     Dosage: MOUTH WASH
     Dates: start: 20150321, end: 20150322

REACTIONS (1)
  - Ageusia [None]

NARRATIVE: CASE EVENT DATE: 20150322
